FAERS Safety Report 24572209 (Version 3)
Quarter: 2024Q4

REPORT INFORMATION
  Report Type: Spontaneous
  Country: US (occurrence: US)
  Receive Date: 20241101
  Receipt Date: 20241212
  Transmission Date: 20250115
  Serious: Yes (Other)
  Sender: PFIZER
  Company Number: US-PFIZER INC-202400291303

PATIENT
  Age: 51 Year
  Sex: Female

DRUGS (5)
  1. VELSIPITY [Suspect]
     Active Substance: ETRASIMOD ARGININE
     Dosage: 2 MG
     Route: 048
  2. BIOTIN [Concomitant]
     Active Substance: BIOTIN
     Indication: Hair disorder
     Dosage: UNK
  3. BIOTIN [Concomitant]
     Active Substance: BIOTIN
     Indication: Nail disorder
  4. BIOTIN [Concomitant]
     Active Substance: BIOTIN
     Indication: Skin disorder
  5. ADVIL [Concomitant]
     Active Substance: IBUPROFEN
     Indication: Headache

REACTIONS (6)
  - Type 2 diabetes mellitus [Unknown]
  - Diabetic eye disease [Unknown]
  - Throat irritation [Unknown]
  - Drug hypersensitivity [Unknown]
  - Respiratory tract infection [Unknown]
  - Pyrexia [Unknown]
